FAERS Safety Report 8270122-6 (Version None)
Quarter: 2012Q2

REPORT INFORMATION
  Report Type: 
  Country: None (occurrence: None)
  Receive Date: 20120410
  Receipt Date: 20120330
  Transmission Date: 20120825
  Serious: Yes (Other)
  Sender: FDA-Public Use
  Company Number: PHHY2011BR87477

PATIENT
  Sex: Female

DRUGS (5)
  1. ALENDRONATO [Concomitant]
     Indication: BONE DISORDER
     Dosage: 70 MG, QW
  2. DIOVAN [Suspect]
     Dosage: 160 MG
  3. DIOVAN [Suspect]
     Dosage: 80 MG, DAILY
  4. CENTRUM [Concomitant]
     Dosage: UNK UKN, UNK
  5. CALCIUM PHOSPHATE W/COLECALCIFEROL [Concomitant]
     Dosage: 1 DF,PER DAY

REACTIONS (6)
  - SENSORY DISTURBANCE [None]
  - BLOOD PRESSURE INCREASED [None]
  - PAIN IN EXTREMITY [None]
  - NERVOUSNESS [None]
  - INTERVERTEBRAL DISC PROTRUSION [None]
  - DRUG INTOLERANCE [None]
